FAERS Safety Report 9126893 (Version 2)
Quarter: 2013Q1

REPORT INFORMATION
  Report Type: Spontaneous
  Country: SE (occurrence: SE)
  Receive Date: 20130228
  Receipt Date: 20130311
  Transmission Date: 20140127
  Serious: Yes (Hospitalization)
  Sender: FDA-Public Use
  Company Number: SE-PFIZER INC-2013070341

PATIENT
  Age: 85 Year
  Sex: Male

DRUGS (2)
  1. DOLCONTIN [Suspect]
     Indication: BACK PAIN
  2. DICLOFENAC [Suspect]
     Indication: BACK PAIN

REACTIONS (2)
  - Respiratory failure [Not Recovered/Not Resolved]
  - Renal failure acute [Not Recovered/Not Resolved]
